FAERS Safety Report 23785414 (Version 2)
Quarter: 2024Q2

REPORT INFORMATION
  Report Type: Spontaneous
  Country: JP (occurrence: JP)
  Receive Date: 20240425
  Receipt Date: 20240430
  Transmission Date: 20240716
  Serious: Yes (Hospitalization)
  Sender: FDA-Public Use
  Company Number: JP-Eisai-202400717_LEN-EC_P_1

PATIENT
  Age: 50 Year
  Sex: Female

DRUGS (4)
  1. LENVIMA [Suspect]
     Active Substance: LENVATINIB
     Indication: Uterine cancer
     Route: 048
     Dates: start: 20230112, end: 20230124
  2. LENVIMA [Suspect]
     Active Substance: LENVATINIB
     Route: 048
     Dates: start: 20230202, end: 20230219
  3. LENVIMA [Suspect]
     Active Substance: LENVATINIB
     Route: 048
     Dates: start: 20230220
  4. KEYTRUDA [Concomitant]
     Active Substance: PEMBROLIZUMAB
     Indication: Uterine cancer
     Route: 041
     Dates: start: 20240112, end: 20240313

REACTIONS (2)
  - Pyrexia [Unknown]
  - Hypothyroidism [Recovered/Resolved]

NARRATIVE: CASE EVENT DATE: 20230124
